FAERS Safety Report 12981369 (Version 1)
Quarter: 2016Q4

REPORT INFORMATION
  Report Type: Spontaneous
  Country: US (occurrence: US)
  Receive Date: 20161129
  Receipt Date: 20161129
  Transmission Date: 20170207
  Serious: No
  Sender: FDA-Public Use
  Company Number: US-ZYDUS-011070

PATIENT
  Sex: Female

DRUGS (6)
  1. ALLOPURINOL/ALLOPURINOL SODIUM [Concomitant]
     Indication: GOUT
  2. XANTOFYL [Concomitant]
     Indication: MACULAR DEGENERATION
  3. LOSARTAN. [Suspect]
     Active Substance: LOSARTAN
     Indication: HYPERTENSION
     Route: 048
     Dates: start: 2015
  4. FISH OIL [Concomitant]
     Active Substance: FISH OIL
     Indication: MACULAR DEGENERATION
  5. CINNAMOMUM VERUM BARK [Concomitant]
     Active Substance: CINNAMON
     Indication: MACULAR DEGENERATION
  6. HYDROCHLOROTHIAZIDE/TRIAMTERENE [Concomitant]
     Indication: FLUID RETENTION

REACTIONS (1)
  - Alopecia [Unknown]
